FAERS Safety Report 23516302 (Version 3)
Quarter: 2024Q1

REPORT INFORMATION
  Report Type: Report from Study
  Country: DE (occurrence: DE)
  Receive Date: 20240213
  Receipt Date: 20240305
  Transmission Date: 20240410
  Serious: Yes (Hospitalization, Other)
  Sender: FDA-Public Use
  Company Number: DE-JNJFOC-20240213184

PATIENT
  Age: 8 Decade
  Sex: Male
  Weight: 82 kg

DRUGS (3)
  1. DARATUMUMAB [Suspect]
     Active Substance: DARATUMUMAB
     Indication: Plasma cell myeloma
     Dosage: LINE 1 THERAPY?DATE OF LAST DOSE BEFORE EVENT: 19/JAN/2024
     Route: 042
     Dates: start: 20211112
  2. LENALIDOMIDE [Suspect]
     Active Substance: LENALIDOMIDE
     Indication: Plasma cell myeloma
     Dosage: LAST DOSE BEFORE EVENT: 7.5 MG?DATE OF LAST DOE BEFORE EVENT: 21-JAN-2024
     Route: 065
  3. DEXAMETHASONE [Suspect]
     Active Substance: DEXAMETHASONE
     Indication: Plasma cell myeloma
     Dosage: LAST DOSE BEFORE EVENT - 20 MG?DATE OF LAST DOSE BEFORE EVENT - 20/JAN/2024
     Route: 065
     Dates: start: 20231112

REACTIONS (3)
  - COVID-19 pneumonia [Recovered/Resolved]
  - Atrial fibrillation [Not Recovered/Not Resolved]
  - Cytopenia [Unknown]

NARRATIVE: CASE EVENT DATE: 20240121
